FAERS Safety Report 12984453 (Version 3)
Quarter: 2016Q4

REPORT INFORMATION
  Report Type: Spontaneous
  Country: DE (occurrence: DE)
  Receive Date: 20161129
  Receipt Date: 20161227
  Transmission Date: 20170207
  Serious: Yes (Hospitalization, Other)
  Sender: FDA-Public Use
  Company Number: DE-CELGENEUS-DEU-2016114610

PATIENT
  Age: 66 Year
  Sex: Male

DRUGS (2)
  1. OTEZLA [Suspect]
     Active Substance: APREMILAST
     Indication: PRODUCT USED FOR UNKNOWN INDICATION
     Route: 048
  2. OTEZLA [Suspect]
     Active Substance: APREMILAST
     Route: 048

REACTIONS (1)
  - Transient ischaemic attack [Not Recovered/Not Resolved]

NARRATIVE: CASE EVENT DATE: 20161025
